FAERS Safety Report 9225432 (Version 2)
Quarter: 2013Q2

REPORT INFORMATION
  Report Type: Spontaneous
  Country: IT (occurrence: IT)
  Receive Date: 20130411
  Receipt Date: 20130608
  Transmission Date: 20140414
  Serious: Yes (Other)
  Sender: FDA-Public Use
  Company Number: IT-SANOFI-AVENTIS-2013SA036747

PATIENT
  Age: 55 Year
  Sex: Male

DRUGS (2)
  1. PLAVIX [Suspect]
     Indication: PLATELET AGGREGATION INCREASED
     Route: 048
     Dates: start: 20070723, end: 20121210
  2. OMEPRAZOLE [Suspect]
     Indication: PRODUCT USED FOR UNKNOWN INDICATION
     Route: 048

REACTIONS (1)
  - Portal hypertensive gastropathy [Unknown]
